FAERS Safety Report 10011922 (Version 1)
Quarter: 2014Q1

REPORT INFORMATION
  Report Type: Spontaneous
  Country: DE (occurrence: DE)
  Receive Date: 20140314
  Receipt Date: 20140314
  Transmission Date: 20141002
  Serious: No
  Sender: FDA-Public Use
  Company Number: DE-ELI_LILLY_AND_COMPANY-DE201403001093

PATIENT
  Age: 80 Year
  Sex: Male
  Weight: 81 kg

DRUGS (2)
  1. CYMBALTA [Suspect]
     Indication: ADJUSTMENT DISORDER WITH DEPRESSED MOOD
     Dosage: UNK, UNKNOWN
     Route: 065
  2. MIRTAZAPINE [Suspect]
     Indication: ADJUSTMENT DISORDER WITH DEPRESSED MOOD
     Dosage: UNK, UNKNOWN
     Route: 065

REACTIONS (2)
  - Alanine aminotransferase increased [Not Recovered/Not Resolved]
  - Gamma-glutamyltransferase increased [Not Recovered/Not Resolved]
